FAERS Safety Report 9870854 (Version 2)
Quarter: 2014Q1

REPORT INFORMATION
  Report Type: Report from Study
  Country: SE (occurrence: DE)
  Receive Date: 20140205
  Receipt Date: 20140205
  Transmission Date: 20141002
  Serious: Yes (Other)
  Sender: FDA-Public Use
  Company Number: DE-PFIZER INC-2014020650

PATIENT
  Age: 64 Year
  Sex: Female

DRUGS (1)
  1. PAMIDRONATE DISODIUM [Suspect]
     Indication: PLASMA CELL MYELOMA
     Dosage: 90 MG, EVERY 4 WEEKS
     Route: 042

REACTIONS (1)
  - Osteonecrosis [Recovered/Resolved]
